FAERS Safety Report 10612187 (Version 3)
Quarter: 2017Q3

REPORT INFORMATION
  Report Type: Spontaneous
  Country: US (occurrence: US)
  Receive Date: 20141127
  Receipt Date: 20170731
  Transmission Date: 20171127
  Serious: Yes (Other)
  Sender: FDA-Public Use
  Company Number: US-JNJFOC-20141113714

PATIENT
  Age: 47 Year
  Sex: Male

DRUGS (1)
  1. NEOSPORIN PLUS PAIN RELIEF [Suspect]
     Active Substance: BACITRACIN ZINC\NEOMYCIN SULFATE\POLYMYXIN B SULFATE\PRAMOXINE HYDROCHLORIDE
     Indication: LACERATION
     Route: 061

REACTIONS (1)
  - Anaphylactic reaction [Unknown]
